FAERS Safety Report 22384980 (Version 2)
Quarter: 2023Q2

REPORT INFORMATION
  Report Type: Report from Study
  Country: IT (occurrence: IT)
  Receive Date: 20230530
  Receipt Date: 20230623
  Transmission Date: 20230721
  Serious: Yes (Hospitalization)
  Sender: FDA-Public Use
  Company Number: IT-ALNYLAM PHARMACEUTICALS, INC.-ALN-2023-002433

PATIENT

DRUGS (3)
  1. GIVLAARI [Suspect]
     Active Substance: GIVOSIRAN SODIUM
     Indication: Porphyria acute
     Dosage: 94.5 MILLIGRAM, MONTHLY
     Route: 058
  2. GIVLAARI [Suspect]
     Active Substance: GIVOSIRAN SODIUM
     Dosage: 94.5 MILLIGRAM, MONTHLY
     Route: 058
     Dates: start: 20230421
  3. GIVLAARI [Suspect]
     Active Substance: GIVOSIRAN SODIUM
     Dosage: 94.5 MILLIGRAM, MONTHLY
     Route: 058
     Dates: start: 20230524

REACTIONS (2)
  - Vomiting [Recovering/Resolving]
  - Abdominal pain [Recovering/Resolving]
